FAERS Safety Report 9928715 (Version 1)
Quarter: 2014Q1

REPORT INFORMATION
  Report Type: Spontaneous
  Country: US (occurrence: US)
  Receive Date: 20140227
  Receipt Date: 20140227
  Transmission Date: 20141002
  Serious: Yes (Hospitalization)
  Sender: FDA-Public Use
  Company Number: US-JNJFOC-20140214097

PATIENT
  Age: 81 Year
  Sex: Male

DRUGS (5)
  1. XARELTO [Suspect]
     Indication: THROMBOSIS PROPHYLAXIS
     Route: 048
     Dates: start: 20140123
  2. XARELTO [Suspect]
     Indication: HIP SURGERY
     Route: 048
     Dates: start: 20140123
  3. HYDROCHLOROTHIAZIDE [Concomitant]
     Route: 065
  4. PRAVASTATIN [Concomitant]
     Route: 065
  5. LISINOPRIL [Concomitant]
     Route: 065

REACTIONS (1)
  - Pulmonary embolism [Unknown]
